FAERS Safety Report 6490917-9 (Version None)
Quarter: 2009Q4

REPORT INFORMATION
  Report Type: 
  Country: None (occurrence: None)
  Receive Date: 20091208
  Receipt Date: 20091130
  Transmission Date: 20100525
  Serious: Yes (Death)
  Sender: FDA-Public Use
  Company Number: 2009US003880

PATIENT
  Age: 69 Year
  Sex: Female

DRUGS (14)
  1. LEXISCAN [Suspect]
     Indication: DYSPNOEA
     Dosage: 4 MG, TOTAL DOSE, IV NOS
     Route: 042
     Dates: start: 20091023, end: 20091023
  2. LEXISCAN [Suspect]
     Indication: SCAN MYOCARDIAL PERFUSION
     Dosage: 4 MG, TOTAL DOSE, IV NOS
     Route: 042
     Dates: start: 20091023, end: 20091023
  3. FISH OIL (FISH OIL) [Concomitant]
  4. COENZYME COMPLEX (ADENOSINE, COENZYME A, NADIDE) [Concomitant]
  5. ISOSORBIDE (ISOSORBIDE) [Concomitant]
  6. SINGULAIR [Concomitant]
  7. CALCIUM + VITAMIN D (CALCIUM, COLECALCIFEROL) [Concomitant]
  8. LISINOPRIL [Concomitant]
  9. HYDROCHLOROTHIAZIDE [Concomitant]
  10. POTASSIUM (POTASSIUM) [Concomitant]
  11. CLONIDINE [Concomitant]
  12. VITAMIN E [Concomitant]
  13. ASCORBIC ACID [Concomitant]
  14. B COMPLEX (VITAMIN-B-KOMPLEX STANDARD) [Concomitant]

REACTIONS (1)
  - CARDIAC ARREST [None]
